FAERS Safety Report 7137092-5 (Version None)
Quarter: 2010Q4

REPORT INFORMATION
  Report Type: 
  Country: None (occurrence: None)
  Receive Date: 20101119
  Receipt Date: 20101103
  Transmission Date: 20110411
  Serious: Yes (Hospitalization, Other)
  Sender: FDA-Public Use
  Company Number: 2010SP059007

PATIENT
  Age: 9 Year
  Sex: Male

DRUGS (3)
  1. TEMOZOLOMIDE [Suspect]
     Indication: MEDULLOBLASTOMA
     Dosage: 150 MG/M2;QD;PO
     Route: 048
     Dates: start: 20080930
  2. ETOPOSIDE [Suspect]
     Indication: MEDULLOBLASTOMA
     Dosage: 50 MG/M2;QD;PO
     Route: 048
     Dates: start: 20080930
  3. COTRIM [Concomitant]

REACTIONS (3)
  - FEBRILE NEUTROPENIA [None]
  - HAEMATOTOXICITY [None]
  - THROMBOCYTOPENIA [None]
